FAERS Safety Report 25806161 (Version 2)
Quarter: 2025Q4

REPORT INFORMATION
  Report Type: Report from Study
  Country: CA (occurrence: CA)
  Receive Date: 20250916
  Receipt Date: 20251114
  Transmission Date: 20260117
  Serious: Yes (Other)
  Sender: ABBVIE
  Company Number: CA-ABBVIE-6454388

PATIENT
  Age: 43 Year
  Sex: Male
  Weight: 95.2 kg

DRUGS (2)
  1. SKYRIZI [Suspect]
     Active Substance: RISANKIZUMAB-RZAA
     Indication: Crohn^s disease
     Dosage: LDD: AUG 2025, FORM STRENGTH: 360MG/2.4ML
     Route: 058
  2. CYCLOSPORINE [Concomitant]
     Active Substance: CYCLOSPORINE
     Indication: Product used for unknown indication

REACTIONS (18)
  - Stoma creation [Unknown]
  - Sinus disorder [Unknown]
  - Pain [Unknown]
  - Swelling [Unknown]
  - Malaise [Unknown]
  - Abdominal mass [Unknown]
  - Stoma site reaction [Not Recovered/Not Resolved]
  - Stoma site irritation [Unknown]
  - Fall [Unknown]
  - Limb injury [Unknown]
  - Hernia pain [Unknown]
  - Anal fistula [Unknown]
  - Abscess [Unknown]
  - Rheumatoid arthritis [Unknown]
  - Needle issue [Unknown]
  - Abdominal injury [Unknown]
  - Groin infection [Unknown]
  - Impaired healing [Unknown]

NARRATIVE: CASE EVENT DATE: 20250101
